FAERS Safety Report 21039693 (Version 2)
Quarter: 2022Q3

REPORT INFORMATION
  Report Type: Report from Study
  Country: US (occurrence: US)
  Receive Date: 20220704
  Receipt Date: 20220916
  Transmission Date: 20221026
  Serious: No
  Sender: FDA-Public Use
  Company Number: US-KYOWAKIRIN-2022BKK010047

PATIENT

DRUGS (2)
  1. CRYSVITA [Suspect]
     Active Substance: BUROSUMAB-TWZA
     Indication: Hypophosphataemic osteomalacia
     Dosage: 10 MG, 1X/2 WEEKS
     Route: 065
  2. CRYSVITA [Suspect]
     Active Substance: BUROSUMAB-TWZA
     Dosage: 10 MG, 1X/3 WEEKS
     Route: 065

REACTIONS (5)
  - Muscular weakness [Unknown]
  - Bone pain [Unknown]
  - Nausea [Unknown]
  - Fatigue [Unknown]
  - Inappropriate schedule of product administration [Unknown]
